FAERS Safety Report 20477832 (Version 1)
Quarter: 2022Q1

REPORT INFORMATION
  Report Type: Spontaneous
  Country: US (occurrence: US)
  Receive Date: 20220216
  Receipt Date: 20220216
  Transmission Date: 20220423
  Serious: No
  Sender: FDA-Public Use
  Company Number: US-ORGANON-O2202USA001097

PATIENT
  Sex: Female
  Weight: 125.17 kg

DRUGS (1)
  1. NEXPLANON [Suspect]
     Active Substance: ETONOGESTREL
     Indication: Contraception
     Dosage: 1 IMPLANT, LEFT ARM, DOSE/FREQUENCY: 68MG
     Route: 059
     Dates: start: 202003, end: 20220203

REACTIONS (2)
  - Polymenorrhoea [Unknown]
  - Menstruation irregular [Unknown]
